FAERS Safety Report 5904598-3 (Version None)
Quarter: 2008Q3

REPORT INFORMATION
  Report Type: 
  Country: None (occurrence: None)
  Receive Date: 20080909
  Receipt Date: 20080107
  Transmission Date: 20090109
  Serious: Yes (Other)
  Sender: FDA-Public Use
  Company Number: 163-20785-07101069

PATIENT
  Age: 81 Year
  Sex: Female

DRUGS (2)
  1. THALOMID [Suspect]
     Indication: MULTIPLE MYELOMA
     Dosage: 100 MG, 1 IN 1 D, ORAL
     Route: 048
     Dates: start: 20071001
  2. SEPTRA DS [Suspect]
     Indication: DRUG USE FOR UNKNOWN INDICATION

REACTIONS (5)
  - BURNING SENSATION [None]
  - HYPOAESTHESIA [None]
  - ORAL PAIN [None]
  - SKIN DISORDER [None]
  - STEVENS-JOHNSON SYNDROME [None]
